FAERS Safety Report 7008912-X (Version None)
Quarter: 2010Q3

REPORT INFORMATION
  Report Type: 
  Country: None (occurrence: None)
  Receive Date: 20100420
  Receipt Date: 20100126
  Transmission Date: 20110219
  Serious: No
  Sender: FDA-Public Use
  Company Number: LMI-2010-00031

PATIENT
  Age: 44 Year
  Sex: Female
  Weight: 72.5755 kg

DRUGS (4)
  1. ABLAVAR [Suspect]
     Indication: ANGIOGRAM
     Dosage: 10 ML UNDILUTED ABLAVAR FOLLOWED W/20ML NORMAL SALINE (10 ML),INTRAVENOUS BOLUS
     Route: 040
     Dates: start: 20100126, end: 20100126
  2. ABLAVAR [Suspect]
     Indication: AORTIC DISSECTION
     Dosage: 10 ML UNDILUTED ABLAVAR FOLLOWED W/20ML NORMAL SALINE (10 ML),INTRAVENOUS BOLUS
     Route: 040
     Dates: start: 20100126, end: 20100126
  3. ABLAVAR [Suspect]
     Indication: HEMIPARESIS
     Dosage: 10 ML UNDILUTED ABLAVAR FOLLOWED W/20ML NORMAL SALINE (10 ML),INTRAVENOUS BOLUS
     Route: 040
     Dates: start: 20100126, end: 20100126
  4. ABLAVAR [Suspect]
     Indication: NUCLEAR MAGNETIC RESONANCE IMAGING
     Dosage: 10 ML UNDILUTED ABLAVAR FOLLOWED W/20ML NORMAL SALINE (10 ML),INTRAVENOUS BOLUS
     Route: 040
     Dates: start: 20100126, end: 20100126

REACTIONS (4)
  - GENITAL BURNING SENSATION [None]
  - GROIN PAIN [None]
  - NAUSEA [None]
  - THROAT TIGHTNESS [None]
